FAERS Safety Report 4479602-2 (Version None)
Quarter: 2004Q4

REPORT INFORMATION
  Report Type: 
  Country: None (occurrence: None)
  Receive Date: 20041018
  Receipt Date: 20041001
  Transmission Date: 20050328
  Serious: Yes (Other)
  Sender: FDA-Public Use
  Company Number: 8006344

PATIENT
  Age: 71 Year
  Sex: Female
  Weight: 72.5 kg

DRUGS (5)
  1. KEPPRA [Suspect]
     Indication: GRAND MAL CONVULSION
     Dosage: 500 MG 2/D PO
     Route: 048
     Dates: start: 20040501
  2. HEPATAMYL [Concomitant]
  3. ASASANTIN [Concomitant]
  4. AERIUS [Concomitant]
  5. ALDACTAZINE [Concomitant]

REACTIONS (4)
  - HEPATIC FAILURE [None]
  - HYPOTENSION [None]
  - INFECTION [None]
  - SEPSIS [None]
